FAERS Safety Report 11496384 (Version 1)
Quarter: 2015Q3

REPORT INFORMATION
  Report Type: Spontaneous
  Country: AU (occurrence: AU)
  Receive Date: 20150911
  Receipt Date: 20150911
  Transmission Date: 20151125
  Serious: Yes (Other)
  Sender: FDA-Public Use
  Company Number: AU-PFIZER INC-2015295623

PATIENT
  Sex: Female

DRUGS (1)
  1. RALOVERA [Suspect]
     Active Substance: MEDROXYPROGESTERONE ACETATE
     Dosage: 10 MG, UNK

REACTIONS (2)
  - Dizziness [Recovered/Resolved]
  - Blood pressure decreased [Recovered/Resolved]
